FAERS Safety Report 8387132-0 (Version None)
Quarter: 2012Q2

REPORT INFORMATION
  Report Type: 
  Country: None (occurrence: None)
  Receive Date: 20120523
  Receipt Date: 20120523
  Transmission Date: 20120825
  Serious: Yes (Disabling, Other)
  Sender: FDA-Public Use
  Company Number: None

PATIENT
  Sex: Male
  Weight: 72.5755 kg

DRUGS (1)
  1. TRELSTAR [Suspect]
     Indication: PROSTATE CANCER
     Dates: start: 20111229

REACTIONS (6)
  - TACHYPHRENIA [None]
  - HYPERHIDROSIS [None]
  - AMNESIA [None]
  - RASH [None]
  - ALOPECIA [None]
  - FATIGUE [None]
